FAERS Safety Report 4482004-6 (Version None)
Quarter: 2004Q4

REPORT INFORMATION
  Report Type: 
  Country: None (occurrence: None)
  Receive Date: 20041020
  Receipt Date: 20041004
  Transmission Date: 20050328
  Serious: Yes (Hospitalization, Other)
  Sender: FDA-Public Use
  Company Number: USA040977582

PATIENT
  Age: 67 Year
  Sex: Female
  Weight: 86 kg

DRUGS (2)
  1. EVISTA [Suspect]
     Indication: OSTEOPENIA
     Dosage: 60 MG/1 DAY
     Dates: start: 20030730, end: 20040801
  2. EVISTA [Suspect]
     Indication: OSTEOPOROSIS
     Dosage: 60 MG/1 DAY
     Dates: start: 20030730, end: 20040801

REACTIONS (5)
  - ADENOMYOSIS [None]
  - ENDOMETRIAL CANCER [None]
  - ENDOMETRIOSIS [None]
  - UTERINE CYST [None]
  - UTERINE LEIOMYOMA [None]
